FAERS Safety Report 21233501 (Version 1)
Quarter: 2022Q3

REPORT INFORMATION
  Report Type: Spontaneous
  Country: ES (occurrence: None)
  Receive Date: 20220819
  Receipt Date: 20220819
  Transmission Date: 20221027
  Serious: Yes (Other)
  Sender: FDA-Public Use
  Company Number: 2022A284662

PATIENT
  Age: 43 Year
  Sex: Female

DRUGS (1)
  1. IMFINZI [Suspect]
     Active Substance: DURVALUMAB
     Indication: Lung adenocarcinoma
     Route: 041
     Dates: start: 20211221, end: 20220104

REACTIONS (1)
  - Primary hyperthyroidism [Recovering/Resolving]

NARRATIVE: CASE EVENT DATE: 20220113
